FAERS Safety Report 18908317 (Version 1)
Quarter: 2021Q1

REPORT INFORMATION
  Report Type: Spontaneous
  Country: US (occurrence: US)
  Receive Date: 20210217
  Receipt Date: 20210217
  Transmission Date: 20210420
  Serious: Yes (Death)
  Sender: FDA-Public Use
  Company Number: None

PATIENT
  Age: 37 Year
  Sex: Female

DRUGS (1)
  1. VIVITROL [Suspect]
     Active Substance: NALTREXONE
     Indication: DRUG DEPENDENCE
     Dosage: 380MG INJECTION Q4WEEKS IM
     Route: 030
     Dates: start: 20200924, end: 20201118

REACTIONS (1)
  - Death [None]

NARRATIVE: CASE EVENT DATE: 20210212
